FAERS Safety Report 10330647 (Version 1)
Quarter: 2014Q3

REPORT INFORMATION
  Report Type: Spontaneous
  Country: US (occurrence: None)
  Receive Date: 20140718
  Receipt Date: 20140718
  Transmission Date: 20150326
  Serious: Yes (Life-Threatening)
  Sender: FDA-Public Use
  Company Number: None

PATIENT
  Age: 51 Year
  Sex: Female
  Weight: 77.11 kg

DRUGS (1)
  1. LIOTHYRONINE [Suspect]
     Active Substance: LIOTHYRONINE
     Indication: AUTOIMMUNE THYROIDITIS
     Route: 048
     Dates: start: 20140620, end: 20140621

REACTIONS (10)
  - Pyrexia [None]
  - Dyspnoea [None]
  - Palpitations [None]
  - Muscle spasms [None]
  - Skin burning sensation [None]
  - Eye pain [None]
  - Asthenia [None]
  - Chest pain [None]
  - Product compounding quality issue [None]
  - Flushing [None]

NARRATIVE: CASE EVENT DATE: 20140624
